FAERS Safety Report 16798478 (Version 1)
Quarter: 2019Q4

REPORT INFORMATION
  Report Type: Spontaneous
  Country: US (occurrence: US)
  Receive Date: 20190911
  Receipt Date: 20190911
  Transmission Date: 20200122
  Serious: Yes (Disabling)
  Sender: FDA-Public Use
  Company Number: None

PATIENT
  Age: 70 Year
  Sex: Female
  Weight: 84.6 kg

DRUGS (15)
  1. METOPROLOL SUCCINATE ER 50 MG TABLET [Suspect]
     Active Substance: METOPROLOL SUCCINATE
     Indication: HYPERTENSION
     Dosage: ?          QUANTITY:1 TABLET(S);?
     Route: 048
     Dates: start: 20190906, end: 20190911
  2. POTASSIUM CHLORIDE. [Concomitant]
     Active Substance: POTASSIUM CHLORIDE
  3. MEDROL PACK [Concomitant]
  4. MANUKA WOUND CARE HONEY [Concomitant]
  5. FUROSAMIDE [Concomitant]
     Active Substance: FUROSEMIDE
  6. GUAIFENISEN WITH CODEINE [Concomitant]
  7. CLARITIN [Concomitant]
     Active Substance: LORATADINE
  8. ENALAPRIL MALEATE. [Concomitant]
     Active Substance: ENALAPRIL MALEATE
  9. XANAX [Concomitant]
     Active Substance: ALPRAZOLAM
  10. BENADRYL [Concomitant]
     Active Substance: DIPHENHYDRAMINE HYDROCHLORIDE
  11. VICODIN [Concomitant]
     Active Substance: ACETAMINOPHEN\HYDROCODONE BITARTRATE
  12. ASPIRIN. [Concomitant]
     Active Substance: ASPIRIN
  13. FISH OIL [Concomitant]
     Active Substance: FISH OIL
  14. TYLENOL [Concomitant]
     Active Substance: ACETAMINOPHEN
  15. MINOXIDIL (TOPICAL) [Concomitant]

REACTIONS (15)
  - Pain [None]
  - Weight increased [None]
  - Dizziness [None]
  - Cough [None]
  - Muscle spasms [None]
  - Flatulence [None]
  - Dyspnoea [None]
  - Raynaud^s phenomenon [None]
  - Fatigue [None]
  - Panic attack [None]
  - Peripheral swelling [None]
  - Balance disorder [None]
  - Respiratory tract inflammation [None]
  - Diarrhoea [None]
  - Discomfort [None]

NARRATIVE: CASE EVENT DATE: 20190909
